FAERS Safety Report 16068621 (Version 1)
Quarter: 2019Q1

REPORT INFORMATION
  Report Type: Spontaneous
  Country: US (occurrence: US)
  Receive Date: 20190313
  Receipt Date: 20190313
  Transmission Date: 20190418
  Serious: No
  Sender: FDA-Public Use
  Company Number: US-SA-2019SA063743

PATIENT
  Age: 37 Year
  Sex: Female
  Weight: 49.89 kg

DRUGS (17)
  1. DEXAMETHASONE. [Concomitant]
     Active Substance: DEXAMETHASONE
     Dosage: 10 MG/ML
     Route: 042
     Dates: start: 20181123
  2. DIPHENHYDRAMINE [DIPHENHYDRAMINE HYDROCHLORIDE] [Concomitant]
     Indication: PREMEDICATION
     Dosage: 25 MG
     Route: 048
     Dates: start: 20181123
  3. VITAMIN B12 [Concomitant]
     Active Substance: CYANOCOBALAMIN
     Dosage: 41 MG, QD
     Route: 048
     Dates: start: 20181025
  4. DIPHENHYDRAMINE [DIPHENHYDRAMINE HYDROCHLORIDE] [Concomitant]
     Indication: ANAPHYLACTIC REACTION
  5. BREO ELLIPTA [Concomitant]
     Active Substance: FLUTICASONE FUROATE\VILANTEROL TRIFENATATE
     Dosage: UNK UNK, QD
     Route: 055
     Dates: start: 20180122
  6. CEREZYME [Suspect]
     Active Substance: IMIGLUCERASE
     Indication: GAUCHER^S DISEASE
     Dosage: 3800 U, QOW
     Route: 041
     Dates: start: 20120817
  7. RIBOFLAVIN [Concomitant]
     Active Substance: RIBOFLAVIN
     Dosage: 11 MG, QD
     Route: 048
     Dates: start: 20170813
  8. VITAMIN D3 [Concomitant]
     Active Substance: CHOLECALCIFEROL
     Dosage: 21 U, QD
     Route: 048
     Dates: start: 20180223
  9. NORMAL SALINE [Concomitant]
     Active Substance: SODIUM CHLORIDE
     Dosage: 0.9%, PRN
     Route: 042
     Dates: start: 20181123
  10. STERILE WATER [Concomitant]
     Active Substance: WATER
     Dosage: 1 EACH
     Route: 042
     Dates: start: 20181123
  11. MAGNOLIA OFFICINALIS BARK [Concomitant]
     Dosage: 41 MG, PRN
     Route: 048
     Dates: start: 20180223
  12. DAILY VITAMINS [Concomitant]
     Dosage: UNK UNK, QD
     Route: 048
     Dates: start: 20140414
  13. ACETAMINOPHEN. [Concomitant]
     Active Substance: ACETAMINOPHEN
     Indication: PREMEDICATION
     Dosage: 850 MG
     Route: 048
     Dates: start: 20181123
  14. LIDOCAINE HYDROCHLORIDE;PRILOCAINE [Concomitant]
     Indication: PREMEDICATION
     Dosage: 25%
     Route: 061
     Dates: start: 20181123
  15. EPINEPHRINE. [Concomitant]
     Active Substance: EPINEPHRINE
     Indication: ANAPHYLACTIC REACTION
     Dosage: 0.3 MG, PRN
     Route: 030
     Dates: start: 20181123
  16. SODIUM CHLORIDE. [Concomitant]
     Active Substance: SODIUM CHLORIDE
     Dosage: 0.9%
     Route: 042
     Dates: start: 20181123
  17. CLONAZEPAM. [Concomitant]
     Active Substance: CLONAZEPAM
     Dosage: 0.5 MG, PRN
     Route: 048
     Dates: start: 20170823

REACTIONS (1)
  - Headache [Not Recovered/Not Resolved]
